FAERS Safety Report 13167562 (Version 1)
Quarter: 2017Q1

REPORT INFORMATION
  Report Type: Spontaneous
  Country: US (occurrence: US)
  Receive Date: 20170131
  Receipt Date: 20170131
  Transmission Date: 20170428
  Serious: Yes (Hospitalization, Other)
  Sender: FDA-Public Use
  Company Number: None

PATIENT
  Age: 66 Year
  Sex: Male

DRUGS (1)
  1. INVEGA [Suspect]
     Active Substance: PALIPERIDONE
     Indication: SCHIZOPHRENIA
     Route: 030
     Dates: start: 20170111

REACTIONS (4)
  - Muscle spasms [None]
  - Tardive dyskinesia [None]
  - Rhabdomyolysis [None]
  - Ischaemic stroke [None]

NARRATIVE: CASE EVENT DATE: 20170115
